FAERS Safety Report 12194798 (Version 2)
Quarter: 2016Q4

REPORT INFORMATION
  Report Type: Spontaneous
  Country: US (occurrence: US)
  Receive Date: 20160321
  Receipt Date: 20161208
  Transmission Date: 20170207
  Serious: Yes (Other)
  Sender: FDA-Public Use
  Company Number: US-GLAXOSMITHKLINE-US2016037787

PATIENT
  Age: 83 Year
  Sex: Female

DRUGS (11)
  1. INCRUSE ELLIPTA [Suspect]
     Active Substance: UMECLIDINIUM BROMIDE
     Indication: EMPHYSEMA
     Dosage: 1 PUFF(S), QOD
     Route: 055
  2. FLOMAX [Concomitant]
     Active Substance: TAMSULOSIN HYDROCHLORIDE
  3. CALCIUM [Concomitant]
     Active Substance: CALCIUM
  4. BREO ELLIPTA [Concomitant]
     Active Substance: FLUTICASONE FUROATE\VILANTEROL TRIFENATATE
  5. ALLOPURINOL. [Concomitant]
     Active Substance: ALLOPURINOL
  6. SINGULAIR [Concomitant]
     Active Substance: MONTELUKAST SODIUM
  7. LEVOTHYROXINE. [Concomitant]
     Active Substance: LEVOTHYROXINE
  8. INCRUSE ELLIPTA [Suspect]
     Active Substance: UMECLIDINIUM BROMIDE
     Indication: CHRONIC OBSTRUCTIVE PULMONARY DISEASE
     Dosage: 1 PUFF(S), QD
     Route: 055
     Dates: start: 201507, end: 201609
  9. LISINOPRIL. [Concomitant]
     Active Substance: LISINOPRIL
  10. ESTRACE [Concomitant]
     Active Substance: ESTRADIOL
  11. COREG CR [Concomitant]
     Active Substance: CARVEDILOL PHOSPHATE

REACTIONS (9)
  - Pharyngeal disorder [Not Recovered/Not Resolved]
  - Dyspnoea [Not Recovered/Not Resolved]
  - Throat irritation [Not Recovered/Not Resolved]
  - Underdose [Unknown]
  - Choking [Not Recovered/Not Resolved]
  - Cough [Not Recovered/Not Resolved]
  - Intentional product use issue [Unknown]
  - Device use error [Unknown]
  - Wrong technique in product usage process [Unknown]

NARRATIVE: CASE EVENT DATE: 201507
